FAERS Safety Report 6937516-X (Version None)
Quarter: 2010Q3

REPORT INFORMATION
  Report Type: 
  Country: None (occurrence: None)
  Receive Date: 20100823
  Receipt Date: 20100810
  Transmission Date: 20110219
  Serious: Yes (Other)
  Sender: FDA-Public Use
  Company Number: PHHY2010AT27306

PATIENT
  Sex: Male
  Weight: 75 kg

DRUGS (8)
  1. RASILEZ HCT [Suspect]
     Indication: HYPERTENSION
     Dosage: 300/25 MG
     Dates: start: 20090807
  2. RASILEZ HCT [Suspect]
     Indication: HYPERTENSIVE CRISIS
  3. DILATREND [Concomitant]
     Indication: HYPERTENSION
     Dosage: 25 MG, ONE AND HALF DAILY
     Dates: start: 20090501
  4. DILATREND [Concomitant]
     Indication: HYPERTENSIVE CRISIS
  5. FLUDEX [Concomitant]
     Indication: HYPERTENSION
     Dosage: 1.5 MG DAILY
     Dates: start: 20090814, end: 20090821
  6. FLUDEX [Concomitant]
     Indication: HYPERTENSIVE CRISIS
  7. SEROQUEL [Concomitant]
     Indication: COGNITIVE DISORDER
     Dosage: 200 MG, HALF DAILY
     Dates: start: 20090821
  8. SEROQUEL [Concomitant]
     Indication: HYPOSOMNIA

REACTIONS (14)
  - ALBUMINURIA [None]
  - ANGIOSCLEROSIS [None]
  - AORTIC STENOSIS [None]
  - ARTERIOSCLEROSIS [None]
  - BASILAR ARTERY OCCLUSION [None]
  - CEREBROVASCULAR ACCIDENT [None]
  - CONGENITAL CENTRAL NERVOUS SYSTEM ANOMALY [None]
  - DYSARTHRIA [None]
  - ENCEPHALOPATHY [None]
  - HEART RATE DECREASED [None]
  - HYPERTENSION [None]
  - INFARCTION [None]
  - SPEECH DISORDER [None]
  - VERTIGO [None]
